FAERS Safety Report 11105167 (Version 1)
Quarter: 2015Q2

REPORT INFORMATION
  Report Type: Spontaneous
  Country: US (occurrence: US)
  Receive Date: 20150511
  Receipt Date: 20150511
  Transmission Date: 20150821
  Serious: Yes (Other)
  Sender: FDA-Public Use
  Company Number: US-ENDO PHARMACEUTICALS INC.-2015-000797

PATIENT
  Sex: Male

DRUGS (1)
  1. TESTIM [Suspect]
     Active Substance: TESTOSTERONE
     Indication: HORMONE REPLACEMENT THERAPY
     Route: 065
     Dates: start: 20070124, end: 201405

REACTIONS (4)
  - Anhedonia [Unknown]
  - Pain [Unknown]
  - Physical disability [Unknown]
  - Fear [Unknown]

NARRATIVE: CASE EVENT DATE: 201405
